FAERS Safety Report 25633953 (Version 1)
Quarter: 2025Q3

REPORT INFORMATION
  Report Type: Spontaneous
  Country: US (occurrence: US)
  Receive Date: 20250801
  Receipt Date: 20250801
  Transmission Date: 20251020
  Serious: No
  Sender: SANOFI AVENTIS
  Company Number: US-SA-2025SA223531

PATIENT
  Sex: Female

DRUGS (7)
  1. DUPIXENT [Suspect]
     Active Substance: DUPILUMAB
     Indication: Dermatitis atopic
     Dosage: 300 MG, QOW
     Route: 058
  2. ATORVASTATIN [Concomitant]
     Active Substance: ATORVASTATIN
  3. EZETIMIBE [Concomitant]
     Active Substance: EZETIMIBE
  4. HYDROXYZINE [Concomitant]
     Active Substance: HYDROXYZINE HYDROCHLORIDE
  5. KETOCONAZOLE [Concomitant]
     Active Substance: KETOCONAZOLE
  6. MIRTAZAPINE [Concomitant]
     Active Substance: MIRTAZAPINE
  7. PENTOXIFYLLINE [Concomitant]
     Active Substance: PENTOXIFYLLINE

REACTIONS (3)
  - Headache [Unknown]
  - Dermatitis atopic [Unknown]
  - Rash [Unknown]
